FAERS Safety Report 7398869 (Version 6)
Quarter: 2014Q1

REPORT INFORMATION
  Report Type: Spontaneous
  Country: US (occurrence: US)
  Receive Date: 20100525
  Receipt Date: 20140124
  Transmission Date: 20141002
  Serious: Yes (Other)
  Sender: FDA-Public Use
  Company Number: US-BAYER-201022979NA

PATIENT
  Age: 31 Year
  Sex: Female
  Weight: 50 kg

DRUGS (13)
  1. OCELLA [Suspect]
     Indication: CONTRACEPTION
     Dosage: UNK UNK, QD
     Route: 048
     Dates: start: 2007, end: 20080615
  2. OCELLA [Suspect]
     Indication: ACNE
  3. YAZ [Suspect]
     Dosage: UNK UNK, UNK
     Route: 048
     Dates: start: 2007, end: 20080615
  4. YASMIN [Suspect]
     Indication: CONTRACEPTION
     Dosage: UNK UNK, QD
     Route: 048
     Dates: start: 2007, end: 20080615
  5. YASMIN [Suspect]
     Indication: ACNE
  6. IBUPROFEN [Concomitant]
     Route: 065
  7. CORGARD [Concomitant]
     Route: 065
     Dates: start: 2007
  8. VITAMIN C [Concomitant]
     Route: 065
  9. BENADREX [Concomitant]
  10. COMPAZINE [Concomitant]
  11. DIETARY SUPPLEMENTS [Concomitant]
     Dates: start: 200706
  12. PROTEIN SUPPLEMENTS [Concomitant]
     Dates: start: 200706
  13. PRILOSEC [Concomitant]

REACTIONS (11)
  - Gallbladder disorder [None]
  - Cholecystitis chronic [None]
  - Biliary dyskinesia [None]
  - Abdominal pain lower [None]
  - Nausea [None]
  - Vomiting [None]
  - Aphagia [None]
  - Weight decreased [None]
  - Post cholecystectomy syndrome [Unknown]
  - Headache [Unknown]
  - Dyspnoea [Unknown]
